FAERS Safety Report 6738299-9 (Version None)
Quarter: 2010Q2

REPORT INFORMATION
  Report Type: 
  Country: None (occurrence: None)
  Receive Date: 20100524
  Receipt Date: 20100514
  Transmission Date: 20101027
  Serious: Yes (Hospitalization)
  Sender: FDA-Public Use
  Company Number: B0656901A

PATIENT
  Age: 60 Year
  Sex: Male

DRUGS (6)
  1. ZIDOVUDINE [Suspect]
     Indication: HIV INFECTION
     Route: 065
  2. LAMIVUDINE-HIV [Suspect]
     Indication: HIV INFECTION
     Route: 065
  3. EFAVIRENZ [Suspect]
  4. LOPINAVIR [Suspect]
  5. RITONAVIR [Suspect]
  6. TENOFOVIR [Suspect]

REACTIONS (27)
  - ANAEMIA [None]
  - APLASIA PURE RED CELL [None]
  - BEDRIDDEN [None]
  - BLOOD OSMOLARITY DECREASED [None]
  - BLOOD PARATHYROID HORMONE DECREASED [None]
  - CACHEXIA [None]
  - CARDIOVASCULAR DISORDER [None]
  - CHOLESTASIS [None]
  - CONDITION AGGRAVATED [None]
  - DEHYDRATION [None]
  - DIARRHOEA [None]
  - ENCEPHALOPATHY [None]
  - GRANULOMA [None]
  - HEPATIC ENZYME INCREASED [None]
  - HYPERCALCAEMIA [None]
  - HYPONATRAEMIA [None]
  - IMMUNE RECONSTITUTION SYNDROME [None]
  - INAPPROPRIATE ANTIDIURETIC HORMONE SECRETION [None]
  - INFLAMMATORY MARKER INCREASED [None]
  - LETHARGY [None]
  - MALAISE [None]
  - NAUSEA [None]
  - PYREXIA [None]
  - SPLENOMEGALY [None]
  - URINE SODIUM INCREASED [None]
  - VISCERAL LEISHMANIASIS [None]
  - VOMITING [None]
